FAERS Safety Report 5568158-9 (Version None)
Quarter: 2007Q4

REPORT INFORMATION
  Report Type: 
  Country: None (occurrence: None)
  Receive Date: 20071220
  Receipt Date: 20071210
  Transmission Date: 20080405
  Serious: Yes (Hospitalization)
  Sender: FDA-Public Use
  Company Number: GB-NOVOPROD-270148

PATIENT
  Sex: Female
  Weight: 70.7 kg

DRUGS (2)
  1. LEVEMIR [Suspect]
     Dosage: 31 IU, QD
     Route: 058
     Dates: start: 20050120
  2. NOVORAPID [Suspect]
     Dosage: 34 IU, QD
     Route: 058
     Dates: start: 20050120

REACTIONS (1)
  - SYNCOPE [None]
